FAERS Safety Report 21001053 (Version 3)
Quarter: 2022Q3

REPORT INFORMATION
  Report Type: Spontaneous
  Country: IT (occurrence: IT)
  Receive Date: 20220624
  Receipt Date: 20220803
  Transmission Date: 20221027
  Serious: Yes (Life-Threatening, Hospitalization, Other)
  Sender: FDA-Public Use
  Company Number: IT-AUROBINDO-AUR-APL-2022-023753

PATIENT
  Age: 70 Year
  Sex: Female

DRUGS (3)
  1. LINEZOLID [Suspect]
     Active Substance: LINEZOLID
     Indication: Postoperative wound infection
     Dosage: 600 MILLIGRAM, TWO TIMES A DAY  (30-MIN INFUSION )
     Route: 042
     Dates: start: 20200527, end: 20200627
  2. Tigecycline accord [Concomitant]
     Indication: Postoperative wound infection
     Dosage: 50 MILLIGRAM, TWO TIMES A DAY
     Route: 065
     Dates: start: 20200525
  3. FOSFOMYCIN [Concomitant]
     Active Substance: FOSFOMYCIN
     Indication: Product used for unknown indication
     Route: 065

REACTIONS (11)
  - Toxicity to various agents [Recovered/Resolved]
  - Hyperlactacidaemia [Recovered/Resolved]
  - Thrombocytopenia [Recovered/Resolved]
  - Hypocapnia [Recovered/Resolved]
  - Haematotoxicity [Recovered/Resolved]
  - Lactic acidosis [Recovered/Resolved]
  - International normalised ratio increased [Recovered/Resolved]
  - Hypoglycaemia [Recovered/Resolved]
  - Mitochondrial toxicity [Recovered/Resolved]
  - Metabolic acidosis [Recovered/Resolved]
  - Drug ineffective [Unknown]

NARRATIVE: CASE EVENT DATE: 20200601
